FAERS Safety Report 6649601-0 (Version None)
Quarter: 2010Q1

REPORT INFORMATION
  Report Type: 
  Country: None (occurrence: None)
  Receive Date: 20100324
  Receipt Date: 20100315
  Transmission Date: 20100710
  Serious: Yes (Death)
  Sender: FDA-Public Use
  Company Number: NL-GENENTECH-299469

PATIENT
  Sex: Female

DRUGS (2)
  1. RANIBIZUMAB [Suspect]
     Indication: MACULAR DEGENERATION
     Dosage: 4 MG, UNK
     Route: 031
     Dates: start: 20090204
  2. RANIBIZUMAB [Suspect]
     Dosage: 4 MG, UNK
     Route: 031
     Dates: start: 20091124

REACTIONS (1)
  - DEATH [None]
